FAERS Safety Report 23739491 (Version 1)
Quarter: 2024Q2

REPORT INFORMATION
  Report Type: Spontaneous
  Country: NL (occurrence: NL)
  Receive Date: 20240413
  Receipt Date: 20240413
  Transmission Date: 20240715
  Serious: Yes (Other)
  Sender: FDA-Public Use
  Company Number: None

PATIENT
  Age: 64 Year
  Sex: Female
  Weight: 76 kg

DRUGS (4)
  1. PREDNISOLONE [Suspect]
     Active Substance: PREDNISOLONE
     Indication: Nasal polyps
     Dosage: 1 X PER DAY  / BRAND NAME NOT SPECIFIED
     Route: 065
     Dates: start: 20240226, end: 20240304
  2. FLUTICASON-PROPIONATE [Concomitant]
     Indication: Product used for unknown indication
     Dosage: NASAL SPRAY, 50 ?G/DOSE (MICROGRAMS PER DOSE), 50UG/DO / BRAND NAME NOT SPECIFIED
     Route: 065
  3. PANTOPRAZOLE [Concomitant]
     Active Substance: PANTOPRAZOLE
     Indication: Product used for unknown indication
     Dosage: DOSAGE FORM: ENTERIC RESISTANT TABLET, 20 MG (MILLIGRAM),  / BRAND NAME NOT SPECIFIED
     Route: 065
  4. TACAL D3 [Concomitant]
     Indication: Product used for unknown indication
     Dosage: CALCIUM CARB/COLECALC, 1.25 G (GRAM)/800 UNITS,? TB 1.25G/800IU (500MG CA) /  500MG/800IU ORANGE
     Route: 065

REACTIONS (8)
  - Mental impairment [Not Recovered/Not Resolved]
  - Skin burning sensation [Recovering/Resolving]
  - Dizziness [Not Recovered/Not Resolved]
  - Asthenia [Recovering/Resolving]
  - Palpitations [Recovering/Resolving]
  - Confusional state [Not Recovered/Not Resolved]
  - Erythema [Recovering/Resolving]
  - Thirst [Recovered/Resolved]
